FAERS Safety Report 7315248-6 (Version None)
Quarter: 2011Q1

REPORT INFORMATION
  Report Type: 
  Country: None (occurrence: None)
  Receive Date: 20110225
  Receipt Date: 20110217
  Transmission Date: 20110831
  Serious: Yes (Hospitalization)
  Sender: FDA-Public Use
  Company Number: FR-PFIZER INC-2010131473

PATIENT
  Age: 44 Year
  Sex: Male

DRUGS (17)
  1. TAMSULOSIN HCL [Concomitant]
  2. AMIKACIN [Suspect]
     Indication: INFECTION
     Dosage: 1 G, 1X/DAY
     Route: 051
     Dates: start: 20100603, end: 20100611
  3. CORTANCYL [Concomitant]
  4. RIVOTRIL [Concomitant]
  5. DAFALGAN [Concomitant]
  6. VITAMIN B1 AND B6 [Concomitant]
  7. DURAGESIC-100 [Concomitant]
  8. IXEL [Concomitant]
  9. TAZOCILLINE [Suspect]
     Indication: INFECTION
     Dosage: 4 G, 1X/DAY
     Route: 051
     Dates: start: 20100603, end: 20100610
  10. ACYCLOVIR [Suspect]
     Indication: INFECTION
     Dosage: 250 MG, 4X/DAY
     Route: 051
     Dates: start: 20100603, end: 20100614
  11. ALPRAZOLAM [Concomitant]
  12. SPECIAFOLDINE [Concomitant]
  13. FLUCONAZOLE [Suspect]
     Dosage: 100 MG, 1X/DAY
     Route: 048
     Dates: start: 20100613, end: 20100618
  14. VANCOMYCIN HCL [Suspect]
     Indication: INFECTION
     Dosage: 500 MG, 4X/DAY
     Route: 051
     Dates: start: 20100603, end: 20100611
  15. NUREFLEX [Concomitant]
  16. FLUCONAZOLE [Suspect]
     Indication: INFECTION
     Dosage: UNK
     Route: 051
     Dates: start: 20100603, end: 20100612
  17. PERIKABIVEN [Concomitant]

REACTIONS (4)
  - RASH [None]
  - PRURITUS [None]
  - PURPURA [None]
  - THROMBOCYTOPENIA [None]
